FAERS Safety Report 10755973 (Version 1)
Quarter: 2015Q1

REPORT INFORMATION
  Report Type: Spontaneous
  Country: US (occurrence: US)
  Receive Date: 20150202
  Receipt Date: 20150202
  Transmission Date: 20150721
  Serious: No
  Sender: FDA-Public Use
  Company Number: US-BAYER-2015-015425

PATIENT
  Age: 74 Year
  Sex: Female
  Weight: 40.36 kg

DRUGS (1)
  1. ALEVE [Suspect]
     Active Substance: NAPROXEN SODIUM
     Indication: ARTHRITIS
     Dosage: 2 DF, PRN
     Route: 048
     Dates: start: 20141015

REACTIONS (2)
  - Urticaria [Not Recovered/Not Resolved]
  - Medication error [None]

NARRATIVE: CASE EVENT DATE: 20141015
